FAERS Safety Report 6336211-8 (Version None)
Quarter: 2009Q3

REPORT INFORMATION
  Report Type: 
  Country: None (occurrence: None)
  Receive Date: 20090901
  Receipt Date: 20090827
  Transmission Date: 20100115
  Serious: Yes (Hospitalization, Other)
  Sender: FDA-Public Use
  Company Number: US-BRISTOL-MYERS SQUIBB COMPANY-14757132

PATIENT
  Age: 64 Year
  Sex: Male
  Weight: 95 kg

DRUGS (10)
  1. SPRYCEL [Suspect]
     Indication: ACUTE LYMPHOCYTIC LEUKAEMIA
     Dosage: STARTED 2 MONTHS AGO, REDUCED TO 70 MG 1 TAB QD .
  2. VINCRISTINE [Concomitant]
     Dosage: TAKEN EVERY 3 WEEKS OR MONTHLY.
     Dates: start: 20090701
  3. ACYCLOVIR [Concomitant]
     Dosage: DURING 07/2009
  4. ALLOPURINOL [Concomitant]
     Dosage: DURING 07/2009
  5. DIFLUCAN [Concomitant]
     Dosage: TAKEN DURING 07/2009
  6. AVELOX [Concomitant]
     Dosage: TAKEN DURING 07/2009
  7. PREDNISONE [Concomitant]
     Dosage: TAKEN DURING 07/2009
  8. PROMETHAZINE [Concomitant]
     Dosage: TAKEN DURING 07/2009
  9. AMBIEN [Concomitant]
     Dosage: TAKEN DURING 07/2009
  10. CALCIUM CARBONATE [Concomitant]
     Dosage: TAKEN DURING 07/2009

REACTIONS (8)
  - ASTHENIA [None]
  - CONSTIPATION [None]
  - DIARRHOEA [None]
  - DYSPEPSIA [None]
  - HYPOTENSION [None]
  - INFECTION [None]
  - UPPER LIMB FRACTURE [None]
  - WEIGHT DECREASED [None]
